FAERS Safety Report 20194123 (Version 1)
Quarter: 2021Q4

REPORT INFORMATION
  Report Type: Spontaneous
  Country: US (occurrence: None)
  Receive Date: 20211215
  Receipt Date: 20211215
  Transmission Date: 20220303
  Serious: No
  Sender: FDA-Public Use
  Company Number: None

PATIENT

DRUGS (2)
  1. REGEN-COV [Suspect]
     Active Substance: CASIRIVIMAB\IMDEVIMAB
     Route: 042
  2. NIMBEX [Suspect]
     Active Substance: CISATRACURIUM BESYLATE
     Route: 042

REACTIONS (2)
  - Intercepted product dispensing error [None]
  - Product name confusion [None]
